FAERS Safety Report 8708320 (Version 2)
Quarter: 2014Q3

REPORT INFORMATION
  Report Type: Report from Study
  Country: AU (occurrence: AU)
  Receive Date: 20120806
  Receipt Date: 20140825
  Transmission Date: 20150326
  Serious: Yes (Hospitalization, Other)
  Sender: FDA-Public Use
  Company Number: PHHY2012AU066866

PATIENT
  Age: 34 Year
  Sex: Female

DRUGS (7)
  1. QUETIAPINE [Concomitant]
     Active Substance: QUETIAPINE
  2. CLOZARIL [Suspect]
     Active Substance: CLOZAPINE
     Dosage: UNK
     Dates: start: 20091027, end: 20110709
  3. PALIPERIDONE [Concomitant]
     Active Substance: PALIPERIDONE
  4. ARIPIPRAZOLE [Concomitant]
     Active Substance: ARIPIPRAZOLE
  5. LITHIUM [Concomitant]
     Active Substance: LITHIUM CARBONATE
  6. VALPROATE SODIUM. [Concomitant]
     Active Substance: VALPROATE SODIUM
  7. OLANZAPINE. [Concomitant]
     Active Substance: OLANZAPINE

REACTIONS (13)
  - Malaise [Unknown]
  - Mental disorder [Unknown]
  - Neutropenia [Unknown]
  - Vomiting [Unknown]
  - Viral infection [Unknown]
  - White blood cell count decreased [Unknown]
  - Condition aggravated [Unknown]
  - Irritability [Unknown]
  - Aggression [Unknown]
  - Nasopharyngitis [Unknown]
  - Schizoaffective disorder [Unknown]
  - Delusion [Unknown]
  - Thinking abnormal [Unknown]

NARRATIVE: CASE EVENT DATE: 201107
